FAERS Safety Report 5726939-2 (Version None)
Quarter: 2008Q2

REPORT INFORMATION
  Report Type: 
  Country: None (occurrence: None)
  Receive Date: 20080502
  Receipt Date: 20080422
  Transmission Date: 20081010
  Serious: Yes (Other)
  Sender: FDA-Public Use
  Company Number: US-PFIZER INC-2008037769

PATIENT
  Sex: Male
  Weight: 100 kg

DRUGS (4)
  1. CHANTIX [Suspect]
     Indication: SMOKING CESSATION THERAPY
  2. DIGOXIN [Interacting]
     Indication: CARDIAC FAILURE
  3. NEXIUM [Concomitant]
  4. INSULIN [Concomitant]

REACTIONS (3)
  - CHEST CRUSHING [None]
  - DRUG INTERACTION [None]
  - DYSPNOEA [None]
